FAERS Safety Report 10344171 (Version 1)
Quarter: 2014Q3

REPORT INFORMATION
  Report Type: Spontaneous
  Country: US (occurrence: None)
  Receive Date: 20140724
  Receipt Date: 20140724
  Transmission Date: 20150326
  Serious: No
  Sender: FDA-Public Use
  Company Number: None

PATIENT
  Age: 43 Year
  Sex: Male
  Weight: 86.18 kg

DRUGS (2)
  1. FLONASE [Suspect]
     Active Substance: FLUTICASONE PROPIONATE
     Indication: UPPER-AIRWAY COUGH SYNDROME
     Dosage: 1 SPRAY EA. NOSTRIL, ONCE DAILY, INHALATION
     Route: 055
     Dates: start: 20140716, end: 20140717
  2. FLONASE [Suspect]
     Active Substance: FLUTICASONE PROPIONATE
     Indication: COUGH
     Dosage: 1 SPRAY EA. NOSTRIL, ONCE DAILY, INHALATION
     Route: 055
     Dates: start: 20140716, end: 20140717

REACTIONS (2)
  - Anxiety [None]
  - Nervousness [None]

NARRATIVE: CASE EVENT DATE: 20140716
